FAERS Safety Report 5859174-8 (Version None)
Quarter: 2008Q3

REPORT INFORMATION
  Report Type: 
  Country: None (occurrence: None)
  Receive Date: 20080825
  Receipt Date: 20080813
  Transmission Date: 20090109
  Serious: Yes (Hospitalization)
  Sender: FDA-Public Use
  Company Number: GXKR2008GB07677

PATIENT
  Age: 53 Year
  Sex: Male

DRUGS (2)
  1. VENLAFAXINE HCL [Suspect]
     Indication: DEPRESSION
     Dosage: 75 MG, QD, ORAL, 750 MG, QD, ORAL, 2100 MG, QD,ORAL, 3750 MG, QD, ORAL
     Route: 048
  2. VENLAFAXINE HCL [Suspect]
     Indication: DEPRESSION
     Dosage: 75 MG, QD, ORAL, 750 MG, QD, ORAL, 2100 MG, QD,ORAL, 3750 MG, QD, ORAL
     Route: 048

REACTIONS (24)
  - AGITATION [None]
  - ALANINE AMINOTRANSFERASE INCREASED [None]
  - ASTHENIA [None]
  - BLOOD CHOLESTEROL INCREASED [None]
  - DIZZINESS [None]
  - DRUG ABUSE [None]
  - DRUG DEPENDENCE [None]
  - DRUG TOLERANCE [None]
  - ELECTROCARDIOGRAM QT PROLONGED [None]
  - ELEVATED MOOD [None]
  - EUPHORIC MOOD [None]
  - FALL [None]
  - GAMMA-GLUTAMYLTRANSFERASE INCREASED [None]
  - HYPOTENSION [None]
  - INCORRECT DOSE ADMINISTERED [None]
  - LIVER FUNCTION TEST ABNORMAL [None]
  - NAUSEA [None]
  - OVERDOSE [None]
  - PERSONALITY DISORDER [None]
  - SELF-MEDICATION [None]
  - SOMNOLENCE [None]
  - TREMOR [None]
  - WEIGHT DECREASED [None]
  - WITHDRAWAL SYNDROME [None]
